FAERS Safety Report 8002526-0 (Version None)
Quarter: 2011Q4

REPORT INFORMATION
  Report Type: 
  Country: None (occurrence: None)
  Receive Date: 20111219
  Receipt Date: 20111205
  Transmission Date: 20120403
  Serious: Yes (Hospitalization, Other)
  Sender: FDA-Public Use
  Company Number: 2011P1013033

PATIENT
  Age: 38 Year
  Sex: Female

DRUGS (3)
  1. CITALOPRAM HYDROBROMIDE [Concomitant]
  2. LITHIUM CARBONATE [Suspect]
     Dosage: 400 MG, QD
  3. OLANZAPINE [Concomitant]

REACTIONS (10)
  - DIARRHOEA [None]
  - TOXICITY TO VARIOUS AGENTS [None]
  - MUSCULAR WEAKNESS [None]
  - GAIT DISTURBANCE [None]
  - HYPOREFLEXIA [None]
  - ANTIPSYCHOTIC DRUG LEVEL ABOVE THERAPEUTIC [None]
  - CLOSTRIDIUM TEST POSITIVE [None]
  - PERIPHERAL SENSORIMOTOR NEUROPATHY [None]
  - DISTURBANCE IN ATTENTION [None]
  - PERONEAL NERVE PALSY [None]
